FAERS Safety Report 13349278 (Version 1)
Quarter: 2017Q1

REPORT INFORMATION
  Report Type: Spontaneous
  Country: US (occurrence: US)
  Receive Date: 20170320
  Receipt Date: 20170320
  Transmission Date: 20170428
  Serious: Yes (Death, Hospitalization)
  Sender: FDA-Public Use
  Company Number: US-ROCHE-1907781

PATIENT
  Age: 31 Year
  Sex: Female
  Weight: 135 kg

DRUGS (1)
  1. RITUXAN [Suspect]
     Active Substance: RITUXIMAB
     Indication: MULTIPLE SCLEROSIS
     Dosage: ONGOING;NO
     Route: 042
     Dates: start: 20160227, end: 20160910

REACTIONS (5)
  - Hypoxia [Fatal]
  - Myocardial infarction [Fatal]
  - Coma [Unknown]
  - Circulatory collapse [Unknown]
  - Cardiac arrest [Fatal]

NARRATIVE: CASE EVENT DATE: 20170116
